FAERS Safety Report 12895627 (Version 1)
Quarter: 2016Q4

REPORT INFORMATION
  Report Type: Spontaneous
  Country: AR (occurrence: AR)
  Receive Date: 20161030
  Receipt Date: 20161030
  Transmission Date: 20170207
  Serious: Yes (Other)
  Sender: FDA-Public Use
  Company Number: AR-AMGEN-ARGSP2016151268

PATIENT
  Age: 76 Year
  Sex: Female

DRUGS (1)
  1. ENBREL [Suspect]
     Active Substance: ETANERCEPT
     Indication: PSORIASIS
     Dosage: 50 MG, WEEKLY
     Route: 065
     Dates: start: 20160622

REACTIONS (6)
  - Malaise [Unknown]
  - Blood pressure decreased [Unknown]
  - Dry skin [Unknown]
  - Diabetes mellitus [Unknown]
  - Condition aggravated [Unknown]
  - Erysipelas [Unknown]

NARRATIVE: CASE EVENT DATE: 2016
